FAERS Safety Report 7964743-5 (Version None)
Quarter: 2011Q4

REPORT INFORMATION
  Report Type: 
  Country: None (occurrence: None)
  Receive Date: 20111208
  Receipt Date: 20111128
  Transmission Date: 20120403
  Serious: Yes (Life-Threatening, Hospitalization)
  Sender: FDA-Public Use
  Company Number: JP-ELI_LILLY_AND_COMPANY-JP201110004646

PATIENT
  Sex: Female

DRUGS (14)
  1. HOCHUUEKKITOU [Concomitant]
     Indication: DECREASED ACTIVITY
     Dosage: 2.5 G, TID
     Route: 048
     Dates: start: 20110916, end: 20111002
  2. ALDACTONE [Concomitant]
     Indication: ASCITES
     Dosage: 50 MG, QD
     Route: 048
     Dates: start: 20091023, end: 20111002
  3. MOTILIUM [Concomitant]
     Indication: DECREASED APPETITE
     Dosage: 20 MG, TID
     Route: 048
     Dates: start: 20110705, end: 20111002
  4. PROMACTA [Concomitant]
  5. RABEPRAZOLE SODIUM [Concomitant]
  6. GASMOTIN [Concomitant]
     Indication: DECREASED APPETITE
     Dosage: 5 MG, TID
     Route: 048
     Dates: start: 20110705, end: 20111002
  7. RIZE [Concomitant]
     Indication: DEPRESSION
     Dosage: 5 MG, TID
     Route: 048
     Dates: start: 20110513, end: 20111002
  8. CYMBALTA [Suspect]
     Indication: DEPRESSION
     Dosage: 20 MG, QD
     Route: 048
     Dates: start: 20110909, end: 20111002
  9. MONILAC [Concomitant]
     Indication: HEPATIC ENCEPHALOPATHY
     Dosage: 20 ML, TID
     Route: 048
     Dates: start: 20110208, end: 20111002
  10. NEUQUINON [Concomitant]
  11. SENNARIDE [Concomitant]
  12. MAGMITT [Concomitant]
  13. LASIX [Concomitant]
     Indication: ASCITES
     Dosage: UNK
     Route: 048
     Dates: start: 20091023, end: 20111002
  14. URSO 250 [Concomitant]

REACTIONS (4)
  - SOMNOLENCE [None]
  - PYELONEPHRITIS [None]
  - HYDRONEPHROSIS [None]
  - URINARY RETENTION [None]
